FAERS Safety Report 6592916-5 (Version None)
Quarter: 2010Q1

REPORT INFORMATION
  Report Type: 
  Country: None (occurrence: None)
  Receive Date: 20100212
  Receipt Date: 20100202
  Transmission Date: 20100710
  Serious: Yes (Other)
  Sender: FDA-Public Use
  Company Number: 2009SP038281

PATIENT
  Age: 20 Year
  Sex: Female

DRUGS (2)
  1. MIRTAZAPINE [Suspect]
     Indication: DEPRESSION
     Dosage: 15 MCG, QD, PO
     Route: 048
     Dates: start: 20090919, end: 20091022
  2. ZOLPIDEM TARTRATE [Concomitant]

REACTIONS (5)
  - ACTIVATION SYNDROME [None]
  - AGGRESSION [None]
  - IMPULSIVE BEHAVIOUR [None]
  - INSOMNIA [None]
  - SUICIDAL IDEATION [None]
